FAERS Safety Report 9340081 (Version 1)
Quarter: 2013Q2

REPORT INFORMATION
  Report Type: Spontaneous
  Country: US (occurrence: None)
  Receive Date: 20130607
  Receipt Date: 20130607
  Transmission Date: 20140414
  Serious: Yes (Other)
  Sender: FDA-Public Use
  Company Number: None

PATIENT
  Age: 46 Year
  Sex: Male

DRUGS (4)
  1. STIVARGA [Suspect]
     Indication: RECTAL CANCER
     Dosage: 160MG QD PO
     Route: 048
     Dates: start: 20130515
  2. BUSPAR [Concomitant]
  3. PROZAC [Concomitant]
  4. OXYCODONE [Concomitant]

REACTIONS (3)
  - Pain in extremity [None]
  - Skin discolouration [None]
  - Impaired work ability [None]
